FAERS Safety Report 17402237 (Version 1)
Quarter: 2020Q1

REPORT INFORMATION
  Report Type: Spontaneous
  Country: US (occurrence: US)
  Receive Date: 20200210
  Receipt Date: 20200210
  Transmission Date: 20200409
  Serious: Yes (Disabling)
  Sender: FDA-Public Use
  Company Number: None

PATIENT
  Age: 70 Year
  Sex: Female
  Weight: 65.7 kg

DRUGS (9)
  1. CRESTOR [Concomitant]
     Active Substance: ROSUVASTATIN CALCIUM
  2. TRELEGY ELLIPTA [Concomitant]
     Active Substance: FLUTICASONE FUROATE\UMECLIDINIUM BROMIDE\VILANTEROL TRIFENATATE
  3. IRON [Concomitant]
     Active Substance: IRON
  4. CALCIUM [Concomitant]
     Active Substance: CALCIUM
  5. MAGNESIUM [Concomitant]
     Active Substance: MAGNESIUM
  6. VITAMIN D [Concomitant]
     Active Substance: VITAMIN D NOS
  7. VITAMIN B12 [Concomitant]
     Active Substance: CYANOCOBALAMIN
  8. COQ10 [Concomitant]
     Active Substance: UBIDECARENONE
  9. PROLIA [Suspect]
     Active Substance: DENOSUMAB
     Indication: OSTEOPOROSIS
     Dosage: ?          OTHER FREQUENCY:2X/ YEARLY;?
     Route: 058
     Dates: start: 20191031

REACTIONS (14)
  - Hypersomnia [None]
  - Asthenia [None]
  - Musculoskeletal stiffness [None]
  - Pain in jaw [None]
  - Back pain [None]
  - Arthralgia [None]
  - Musculoskeletal pain [None]
  - Fatigue [None]
  - Pain in extremity [None]
  - Dyspnoea [None]
  - Hypoacusis [None]
  - Myalgia [None]
  - Muscular weakness [None]
  - Lethargy [None]

NARRATIVE: CASE EVENT DATE: 20191120
